FAERS Safety Report 5706778-9 (Version None)
Quarter: 2008Q2

REPORT INFORMATION
  Report Type: 
  Country: None (occurrence: None)
  Receive Date: 20080415
  Receipt Date: 20080415
  Transmission Date: 20081010
  Serious: No
  Sender: FDA-Public Use
  Company Number: None

PATIENT
  Sex: Female
  Weight: 64.4108 kg

DRUGS (2)
  1. BUPROPION HCL [Suspect]
     Indication: GASTRIC DISORDER
     Dosage: 300MG ONCE DAILY
     Dates: start: 20071208, end: 20071218
  2. WELLBUTRIN XL [Suspect]

REACTIONS (4)
  - EUPHORIC MOOD [None]
  - FEAR [None]
  - PHARMACEUTICAL PRODUCT COMPLAINT [None]
  - SUICIDAL IDEATION [None]
